FAERS Safety Report 19157958 (Version 3)
Quarter: 2021Q2

REPORT INFORMATION
  Report Type: Report from Study
  Country: MX (occurrence: MX)
  Receive Date: 20210420
  Receipt Date: 20210504
  Transmission Date: 20210717
  Serious: Yes (Other)
  Sender: FDA-Public Use
  Company Number: MX-REGENERON PHARMACEUTICALS, INC.-2021-41340

PATIENT

DRUGS (5)
  1. EYLEA [Suspect]
     Active Substance: AFLIBERCEPT
     Indication: DIABETIC RETINAL OEDEMA
     Dosage: BI?MONTHLY, UNKNOWN TOTAL DOSE
     Route: 031
     Dates: start: 20200204
  2. INSULIN GLARGINE [Concomitant]
     Active Substance: INSULIN GLARGINE
     Indication: DIABETES MELLITUS
     Dosage: 10 IU EVERY 24 HOURS AT NIGHT AND 15 IU IF NEEDED
     Route: 058
     Dates: start: 20030101
  3. EYLEA [Suspect]
     Active Substance: AFLIBERCEPT
     Dosage: LAST DOSE PRIOR THE EVENT
     Route: 031
     Dates: start: 20210329, end: 20210329
  4. ERGOTAMINE TARTRATE. [Concomitant]
     Active Substance: ERGOTAMINE TARTRATE
     Indication: MIGRAINE
     Dosage: 10 MG  AS NEEDED FOR EPISODES EVERY 12 HOURS UNTIL ITS DISAPPEARS
     Route: 048
     Dates: start: 19900102
  5. METFORMIN [Concomitant]
     Active Substance: METFORMIN HYDROCHLORIDE
     Indication: DIABETES MELLITUS
     Dosage: 850 MG  1 TABLET EVERY 12 HOURS
     Route: 048
     Dates: start: 19950103

REACTIONS (2)
  - Conjunctivitis [Recovered/Resolved]
  - Cough [Recovered/Resolved]

NARRATIVE: CASE EVENT DATE: 20210407
